FAERS Safety Report 7598394-1 (Version None)
Quarter: 2011Q3

REPORT INFORMATION
  Report Type: 
  Country: None (occurrence: None)
  Receive Date: 20110708
  Receipt Date: 20110629
  Transmission Date: 20111222
  Serious: Yes (Other)
  Sender: FDA-Public Use
  Company Number: GB-ASTRAZENECA-2011SE39003

PATIENT
  Age: 73 Year
  Sex: Female

DRUGS (5)
  1. METFORMIN HCL [Concomitant]
     Indication: DIABETES MELLITUS
     Route: 048
  2. ARIPIPRAZOLE [Concomitant]
     Route: 048
     Dates: end: 20110603
  3. SYMBICORT [Concomitant]
     Indication: ASTHMA
     Dosage: 1 DF, TWO TIMES A DAY
     Route: 055
  4. SEROQUEL XR [Suspect]
     Indication: MANIA
     Route: 048
     Dates: start: 20110603, end: 20110608
  5. LEVOTHYROXINE SODIUM [Concomitant]
     Indication: HYPOTHYROIDISM
     Route: 048

REACTIONS (4)
  - THROMBOCYTOPENIA [None]
  - PANCYTOPENIA [None]
  - ANAEMIA [None]
  - LEUKOPENIA [None]
